FAERS Safety Report 7260455-4 (Version None)
Quarter: 2011Q1

REPORT INFORMATION
  Report Type: 
  Country: None (occurrence: None)
  Receive Date: 20110130
  Receipt Date: 20101110
  Transmission Date: 20110831
  Serious: No
  Sender: FDA-Public Use
  Company Number: US-ABBOTT-10P-163-0684506-00

PATIENT
  Sex: Male

DRUGS (5)
  1. UNKNOWN MEDICATION [Concomitant]
     Indication: ANXIETY
  2. HUMIRA [Suspect]
     Indication: PSORIASIS
     Dates: start: 20100301, end: 20100301
  3. HUMIRA [Suspect]
     Dates: start: 20100301, end: 20101001
  4. CARVEDILOL [Concomitant]
     Indication: HYPERTENSION
  5. GLIMEPIRIDE [Concomitant]
     Indication: DIABETES MELLITUS

REACTIONS (4)
  - WHEEZING [None]
  - DRUG DOSE OMISSION [None]
  - ARTHRITIS [None]
  - DRUG INEFFECTIVE [None]
